FAERS Safety Report 9298298 (Version 1)
Quarter: 2013Q2

REPORT INFORMATION
  Report Type: Spontaneous
  Country: US (occurrence: US)
  Receive Date: 20130520
  Receipt Date: 20130520
  Transmission Date: 20140414
  Serious: Yes (Other)
  Sender: FDA-Public Use
  Company Number: US-SANOFI-AVENTIS-2013SA049157

PATIENT
  Age: 45 Year
  Sex: Male

DRUGS (1)
  1. LANTUS [Suspect]
     Indication: TYPE 1 DIABETES MELLITUS
     Dosage: SLIDING SCALE / AS NEEDED

REACTIONS (5)
  - Ankle fracture [Not Recovered/Not Resolved]
  - Abasia [Unknown]
  - Periodic limb movement disorder [Not Recovered/Not Resolved]
  - Post procedural infection [Not Recovered/Not Resolved]
  - Blood glucose decreased [Not Recovered/Not Resolved]
